FAERS Safety Report 14964750 (Version 2)
Quarter: 2018Q2

REPORT INFORMATION
  Report Type: Report from Study
  Country: BE (occurrence: BE)
  Receive Date: 20180601
  Receipt Date: 20180614
  Transmission Date: 20180711
  Serious: Yes (Other)
  Sender: FDA-Public Use
  Company Number: BE-BEH-2018091122

PATIENT
  Age: 4 Year
  Sex: Male

DRUGS (1)
  1. HIZENTRA [Suspect]
     Active Substance: HUMAN IMMUNOGLOBULIN G
     Indication: PRODUCT USED FOR UNKNOWN INDICATION
     Dosage: 3 G, QW
     Route: 058
     Dates: start: 20160322

REACTIONS (7)
  - Pyrexia [Recovering/Resolving]
  - Subglottic laryngitis [Recovering/Resolving]
  - Bronchitis [Recovering/Resolving]
  - Ear infection [Recovering/Resolving]
  - Injection site extravasation [Recovered/Resolved]
  - Cough [Recovering/Resolving]
  - Hand-foot-and-mouth disease [Recovering/Resolving]

NARRATIVE: CASE EVENT DATE: 201804
